FAERS Safety Report 6028486-X (Version None)
Quarter: 2008Q4

REPORT INFORMATION
  Report Type: 
  Country: None (occurrence: None)
  Receive Date: 20081222
  Receipt Date: 20081023
  Transmission Date: 20090506
  Serious: No
  Sender: FDA-Public Use
  Company Number: US-WYE-H06543208

PATIENT
  Age: 40 Year
  Sex: Female

DRUGS (2)
  1. PRISTIQ [Suspect]
     Indication: ANXIETY
     Dosage: 50 MG 1X PER 1 DAY, ORAL
     Route: 048
     Dates: start: 20081021
  2. PRISTIQ [Suspect]
     Indication: PANIC ATTACK
     Dosage: 50 MG 1X PER 1 DAY, ORAL
     Route: 048
     Dates: start: 20081021

REACTIONS (8)
  - AGITATION [None]
  - ANXIETY [None]
  - CONDITION AGGRAVATED [None]
  - FEAR [None]
  - HEART RATE INCREASED [None]
  - NERVOUSNESS [None]
  - PALPITATIONS [None]
  - TREMOR [None]
